FAERS Safety Report 18336447 (Version 1)
Quarter: 2020Q4

REPORT INFORMATION
  Report Type: Spontaneous
  Country: DE (occurrence: DE)
  Receive Date: 20201001
  Receipt Date: 20201001
  Transmission Date: 20210113
  Serious: Yes (Hospitalization)
  Sender: FDA-Public Use
  Company Number: DE-TEVA-2020-DE-1832302

PATIENT
  Age: 81 Year
  Sex: Female

DRUGS (10)
  1. DONEPEZIL. [Concomitant]
     Active Substance: DONEPEZIL
     Dosage: 5 MILLIGRAM DAILY; 5 MG, 0-0-0-1
     Route: 048
  2. CLOPIDOGREL [Concomitant]
     Active Substance: CLOPIDOGREL BISULFATE
     Dosage: 75 MILLIGRAM DAILY; 75 MG, 0-1-0-0
     Route: 048
  3. QUETIAPIN [Suspect]
     Active Substance: QUETIAPINE
     Dosage: 75 MILLIGRAM DAILY; 25 MG, 1-1-1-0
     Route: 048
  4. LACOSAMID [Suspect]
     Active Substance: LACOSAMIDE
     Dosage: 100 MILLIGRAM DAILY; 50 MG, 1-0-1-0
     Route: 048
  5. LEVETIRACETAM. [Suspect]
     Active Substance: LEVETIRACETAM
     Dosage: 1500 MILLIGRAM DAILY; 750 MG, 1-0-1-0
     Route: 048
  6. SIMVASTATIN. [Concomitant]
     Active Substance: SIMVASTATIN
     Dosage: 20 MILLIGRAM DAILY; 20 MG, 0-0-1-0
     Route: 048
  7. NOVOTHYRAL 100 [Concomitant]
     Dosage: 1 DOSAGE FORMS DAILY; 0.1|0.02 MG, 1-0-0-0
     Route: 048
  8. RISPERIDON [Suspect]
     Active Substance: RISPERIDONE
     Dosage: .5 DOSAGE FORMS DAILY; 1 MG, 0.5-0-0.5-0
     Route: 048
  9. QUETIAPIN [Suspect]
     Active Substance: QUETIAPINE
     Dosage: 100 MILLIGRAM DAILY; 50 MG, 0-0-1-1, SUSTAINED-RELEASE TABLETS
     Route: 048
  10. MIRTAZAPIN [Suspect]
     Active Substance: MIRTAZAPINE
     Dosage: 45 MILLIGRAM DAILY; 45 MG, 0-0-0-1
     Route: 048

REACTIONS (2)
  - Fall [Unknown]
  - Fracture [Unknown]
